FAERS Safety Report 15061791 (Version 1)
Quarter: 2018Q2

REPORT INFORMATION
  Report Type: Report from Study
  Country: US (occurrence: US)
  Receive Date: 20180625
  Receipt Date: 20180625
  Transmission Date: 20180711
  Serious: Yes (Hospitalization)
  Sender: FDA-Public Use
  Company Number: US-ROCHE-2143023

PATIENT
  Age: 60 Year
  Sex: Male
  Weight: 120.31 kg

DRUGS (2)
  1. OCREVUS [Suspect]
     Active Substance: OCRELIZUMAB
     Indication: PROGRESSIVE MULTIPLE SCLEROSIS
     Dosage: HALF INFUSIONS 2 WEEKS APART 21/DEC/2017
     Route: 042
     Dates: start: 20171207
  2. DIPHENHYDRAMINE. [Concomitant]
     Active Substance: DIPHENHYDRAMINE
     Route: 048

REACTIONS (6)
  - Urinary tract infection [Unknown]
  - Infection [Unknown]
  - White blood cell count abnormal [Unknown]
  - Acute kidney injury [Unknown]
  - Ill-defined disorder [Unknown]
  - Injury [Unknown]

NARRATIVE: CASE EVENT DATE: 2018
